FAERS Safety Report 13757007 (Version 1)
Quarter: 2017Q3

REPORT INFORMATION
  Report Type: Spontaneous
  Country: US (occurrence: US)
  Receive Date: 20170714
  Receipt Date: 20170714
  Transmission Date: 20171127
  Serious: Yes (Hospitalization)
  Sender: FDA-Public Use
  Company Number: US-ALLERGAN-1729390US

PATIENT
  Age: 46 Year
  Sex: Female
  Weight: 56.69 kg

DRUGS (2)
  1. BOTOX [Suspect]
     Active Substance: ONABOTULINUMTOXINA
     Indication: MIGRAINE
     Dosage: 150 UNITS, SINGLE
     Route: 030
     Dates: start: 20170606, end: 20170606
  2. ADVIL [Concomitant]
     Active Substance: IBUPROFEN
     Indication: MIGRAINE
     Dosage: 200 MG, PRN
     Route: 048

REACTIONS (9)
  - Dysphagia [Not Recovered/Not Resolved]
  - Feeling abnormal [Recovered/Resolved]
  - Brow ptosis [Not Recovered/Not Resolved]
  - Suffocation feeling [Recovered/Resolved]
  - Malaise [Not Recovered/Not Resolved]
  - Increased upper airway secretion [Unknown]
  - Weight decreased [Not Recovered/Not Resolved]
  - Neck pain [Recovered/Resolved]
  - Gait disturbance [Recovered/Resolved]

NARRATIVE: CASE EVENT DATE: 20170606
